FAERS Safety Report 24298012 (Version 4)
Quarter: 2024Q4

REPORT INFORMATION
  Report Type: Report from Study
  Country: BR (occurrence: BR)
  Receive Date: 20240909
  Receipt Date: 20241016
  Transmission Date: 20250115
  Serious: Yes (Other)
  Sender: MYLAN
  Company Number: BR-MYLANLABS-2024M1081344

PATIENT
  Sex: Female
  Weight: 52 kg

DRUGS (5)
  1. XALATAN [Suspect]
     Active Substance: LATANOPROST
     Indication: Glaucoma
     Dosage: 1 GTT DROPS, BID (1 DROP IN EACH EYE, 2X DAY)
     Route: 047
     Dates: start: 2009
  2. XALATAN [Suspect]
     Active Substance: LATANOPROST
     Indication: Eye disorder
     Dosage: 1 GTT DROPS, BID (1 DROP IN EACH EYE, 2X DAY)
     Route: 047
  3. CARBOXYMETHYLCELLULOSE SODIUM [Concomitant]
     Active Substance: CARBOXYMETHYLCELLULOSE SODIUM
     Indication: Glaucoma
     Dosage: 1 GTT DROPS, QID (1 DROP IN EACH EYE, 4X DAY)
     Route: 047
     Dates: start: 2009
  4. NEVANAC [Concomitant]
     Active Substance: NEPAFENAC
     Indication: Glaucoma
     Dosage: 1 GTT DROPS, BID (1 DROP IN EACH EYE, 2X DAY)
     Route: 047
     Dates: start: 2009
  5. AZOPT [Concomitant]
     Active Substance: BRINZOLAMIDE
     Indication: Glaucoma
     Dosage: 1 GTT DROPS, BID (1 DROP IN EACH EYE, 2X DAY)
     Route: 047
     Dates: start: 2009

REACTIONS (4)
  - Cataract [Not Recovered/Not Resolved]
  - Macular degeneration [Not Recovered/Not Resolved]
  - Visual impairment [Not Recovered/Not Resolved]
  - Off label use [Not Recovered/Not Resolved]

NARRATIVE: CASE EVENT DATE: 20090101
